FAERS Safety Report 7272940-X (Version None)
Quarter: 2011Q1

REPORT INFORMATION
  Report Type: 
  Country: None (occurrence: None)
  Receive Date: 20110203
  Receipt Date: 20110201
  Transmission Date: 20110831
  Serious: Yes (Hospitalization)
  Sender: FDA-Public Use
  Company Number: A0786470A

PATIENT
  Age: 55 Year
  Sex: Female
  Weight: 137.3 kg

DRUGS (10)
  1. INSULIN [Concomitant]
  2. OXYGEN [Concomitant]
  3. LOPID [Concomitant]
  4. LIPITOR [Concomitant]
  5. AVANDIA [Suspect]
     Route: 048
     Dates: start: 20060401, end: 20080501
  6. METFORMIN [Concomitant]
  7. AMITRIPTYLINE HCL [Concomitant]
  8. AVANDAMET [Suspect]
     Indication: DIABETES MELLITUS
     Route: 048
     Dates: start: 20060601, end: 20070901
  9. GLIPIZIDE [Concomitant]
  10. ALBUTEROL [Concomitant]

REACTIONS (5)
  - CARDIAC FAILURE CONGESTIVE [None]
  - STENT PLACEMENT [None]
  - CHEST PAIN [None]
  - CORONARY ARTERY DISEASE [None]
  - CHRONIC OBSTRUCTIVE PULMONARY DISEASE [None]
